FAERS Safety Report 11875339 (Version 1)
Quarter: 2015Q4

REPORT INFORMATION
  Report Type: Spontaneous
  Country: US (occurrence: US)
  Receive Date: 20151229
  Receipt Date: 20151229
  Transmission Date: 20160305
  Serious: No
  Sender: FDA-Public Use
  Company Number: US-PFIZER INC-2015424325

PATIENT
  Age: 82 Year
  Sex: Female
  Weight: 86.18 kg

DRUGS (4)
  1. TOPROL XL [Concomitant]
     Active Substance: METOPROLOL SUCCINATE
     Indication: HYPERTENSION
     Dosage: 200 MG
  2. SYNTHROID [Concomitant]
     Active Substance: LEVOTHYROXINE SODIUM
     Indication: THYROID DISORDER
     Dosage: 88 MCG
  3. ADVIL [Suspect]
     Active Substance: IBUPROFEN
     Indication: GAIT DISTURBANCE
     Dosage: 200 MG, ONE TABLET
     Dates: start: 20151130, end: 20151201
  4. FISH OIL [Concomitant]
     Active Substance: FISH OIL
     Dosage: CAPSULES
     Dates: start: 20151130, end: 20151201

REACTIONS (3)
  - Pollakiuria [Recovering/Resolving]
  - Product use issue [Unknown]
  - Urine output increased [Recovering/Resolving]

NARRATIVE: CASE EVENT DATE: 20151201
